FAERS Safety Report 18732198 (Version 6)
Quarter: 2022Q1

REPORT INFORMATION
  Report Type: Report from Study
  Country: US (occurrence: US)
  Receive Date: 20210112
  Receipt Date: 20220323
  Transmission Date: 20220424
  Serious: Yes (Other)
  Sender: FDA-Public Use
  Company Number: NVSC2021US005530

PATIENT
  Age: 35 Year
  Sex: Female

DRUGS (1)
  1. KESIMPTA [Suspect]
     Active Substance: OFATUMUMAB
     Indication: Relapsing-remitting multiple sclerosis
     Dosage: 20 MG, QMO
     Route: 058
     Dates: start: 20201117

REACTIONS (9)
  - Multiple sclerosis [Not Recovered/Not Resolved]
  - Vertigo [Unknown]
  - Orthostatic hypotension [Unknown]
  - Blood glucose decreased [Unknown]
  - Hypotension [Unknown]
  - Speech disorder [Not Recovered/Not Resolved]
  - Fatigue [Recovering/Resolving]
  - Injection site bruising [Recovered/Resolved]
  - Urinary tract infection [Recovering/Resolving]

NARRATIVE: CASE EVENT DATE: 20201212
